FAERS Safety Report 19694373 (Version 1)
Quarter: 2021Q3

REPORT INFORMATION
  Report Type: Spontaneous
  Country: RU (occurrence: RU)
  Receive Date: 20210813
  Receipt Date: 20210813
  Transmission Date: 20211014
  Serious: Yes (Death)
  Sender: FDA-Public Use
  Company Number: RU-ABBVIE-21K-251-4037507-00

PATIENT
  Sex: Female

DRUGS (1)
  1. SEVORANE [Suspect]
     Active Substance: SEVOFLURANE
     Indication: DENTAL CARIES
     Dosage: ONCE
     Route: 055

REACTIONS (1)
  - Arrhythmia [Fatal]
